FAERS Safety Report 4279188-1 (Version None)
Quarter: 2004Q1

REPORT INFORMATION
  Report Type: 
  Country: None (occurrence: None)
  Receive Date: 20040122
  Receipt Date: 20040106
  Transmission Date: 20041129
  Serious: Yes (Hospitalization)
  Sender: FDA-Public Use
  Company Number: 2004-06549

PATIENT
  Age: 39 Year
  Sex: Male
  Weight: 72 kg

DRUGS (2)
  1. VIREAD [Suspect]
     Indication: HIV INFECTION
     Dosage: 300 MG QD PO
     Route: 048
     Dates: start: 20031104, end: 20031125
  2. KALETRA [Suspect]
     Indication: HIV INFECTION
     Dosage: 3 BID PO
     Route: 048
     Dates: start: 20031104, end: 20031125

REACTIONS (7)
  - ALANINE AMINOTRANSFERASE INCREASED [None]
  - ASPARTATE AMINOTRANSFERASE INCREASED [None]
  - BLOOD BILIRUBIN INCREASED [None]
  - BLOOD LACTATE DEHYDROGENASE INCREASED [None]
  - GAMMA-GLUTAMYLTRANSFERASE INCREASED [None]
  - JAUNDICE [None]
  - LIVER FUNCTION TEST ABNORMAL [None]
